FAERS Safety Report 6426562-0 (Version None)
Quarter: 2009Q4

REPORT INFORMATION
  Report Type: 
  Country: None (occurrence: None)
  Receive Date: 20091104
  Receipt Date: 20091023
  Transmission Date: 20100525
  Serious: Yes (Other)
  Sender: FDA-Public Use
  Company Number: DE-BAYER-200937408GPV

PATIENT

DRUGS (6)
  1. FLUDARABINE [Suspect]
     Indication: CHRONIC LYMPHOCYTIC LEUKAEMIA
     Route: 042
  2. FLUDARABINE [Suspect]
     Route: 042
  3. FLUDARABINE [Suspect]
     Route: 042
  4. FLUDARABINE [Suspect]
     Route: 042
  5. FLUDARABINE [Suspect]
     Route: 042
  6. FLUDARABINE [Suspect]
     Route: 042

REACTIONS (1)
  - NEOPLASM [None]
